FAERS Safety Report 10223581 (Version 1)
Quarter: 2014Q2

REPORT INFORMATION
  Report Type: Report from Study
  Country: US (occurrence: US)
  Receive Date: 20140609
  Receipt Date: 20140609
  Transmission Date: 20141212
  Serious: Yes (Hospitalization, Other)
  Sender: FDA-Public Use
  Company Number: US-ROCHE-1409713

PATIENT
  Age: 16 Year
  Sex: Female
  Weight: 44.82 kg

DRUGS (7)
  1. NUTROPIN AQ [Suspect]
     Indication: BODY HEIGHT BELOW NORMAL
     Dosage: Q HS
     Route: 058
     Dates: start: 200901
  2. FAMOTIDINE [Concomitant]
  3. MIRALAX [Concomitant]
  4. PROVENTIL [Concomitant]
     Dosage: 2 PUFFS
     Route: 065
  5. SYMBICORT [Concomitant]
     Dosage: INHALATION. 1 PUFF DAILY
     Route: 065
  6. BENADRYL COLD [Concomitant]
  7. NORCO [Concomitant]

REACTIONS (11)
  - Gastrooesophageal reflux disease [Unknown]
  - Menorrhagia [Unknown]
  - Menstruation irregular [Unknown]
  - Constipation [Unknown]
  - Oropharyngeal pain [Unknown]
  - Asthma [Unknown]
  - Nausea [Unknown]
  - Vomiting [Unknown]
  - Hypophagia [Unknown]
  - Headache [Unknown]
  - Strabismus [Recovered/Resolved]
